FAERS Safety Report 17484105 (Version 1)
Quarter: 2020Q1

REPORT INFORMATION
  Report Type: Spontaneous
  Country: US (occurrence: US)
  Receive Date: 20200219
  Receipt Date: 20200219
  Transmission Date: 20200409
  Serious: Yes (Hospitalization)
  Sender: FDA-Public Use
  Company Number: None

PATIENT
  Age: 73 Year
  Sex: Male
  Weight: 70 kg

DRUGS (2)
  1. ABIRATERONE ACETATE. [Suspect]
     Active Substance: ABIRATERONE ACETATE
     Dates: end: 20200215
  2. CABAZITAXEL [Suspect]
     Active Substance: CABAZITAXEL
     Dates: end: 20200203

REACTIONS (10)
  - Tremor [None]
  - Atrial fibrillation [None]
  - Febrile neutropenia [None]
  - Chest discomfort [None]
  - Dizziness [None]
  - Chest pain [None]
  - Diarrhoea [None]
  - Pyrexia [None]
  - Hypotension [None]
  - Sepsis [None]

NARRATIVE: CASE EVENT DATE: 20200215
